FAERS Safety Report 7457322-X (Version None)
Quarter: 2011Q2

REPORT INFORMATION
  Report Type: 
  Country: None (occurrence: None)
  Receive Date: 20110504
  Receipt Date: 20110203
  Transmission Date: 20111010
  Serious: Yes (Other)
  Sender: FDA-Public Use
  Company Number: GB-KINGPHARMUSA00001-K201100433

PATIENT
  Sex: Female

DRUGS (1)
  1. AVINZA [Suspect]
     Dosage: UNKNOWN
     Route: 065

REACTIONS (1)
  - OVERDOSE [None]
